FAERS Safety Report 5483354-7 (Version None)
Quarter: 2007Q4

REPORT INFORMATION
  Report Type: 
  Country: None (occurrence: None)
  Receive Date: 20071009
  Receipt Date: 20071009
  Transmission Date: 20080405
  Serious: Yes (Other)
  Sender: FDA-Public Use
  Company Number: None

PATIENT
  Age: 46 Year
  Sex: Male

DRUGS (1)
  1. METOPROLOL ER 200MG ASTRA ZENICA / PAR [Suspect]
     Indication: HYPERTENSION
     Dosage: ONCE QD 200MG PO
     Route: 048
     Dates: start: 20070720, end: 20070819

REACTIONS (4)
  - AGITATION [None]
  - FEELING ABNORMAL [None]
  - PALPITATIONS [None]
  - PHARMACEUTICAL PRODUCT COMPLAINT [None]
